FAERS Safety Report 7681709-3 (Version None)
Quarter: 2011Q3

REPORT INFORMATION
  Report Type: 
  Country: None (occurrence: None)
  Receive Date: 20110812
  Receipt Date: 20110803
  Transmission Date: 20111222
  Serious: Yes (Hospitalization)
  Sender: FDA-Public Use
  Company Number: US-ASTRAZENECA-2011SE00418

PATIENT
  Age: 49 Year
  Sex: Male
  Weight: 95.3 kg

DRUGS (25)
  1. SEROQUEL [Suspect]
     Indication: SCHIZOPHRENIA
     Route: 048
     Dates: start: 20050101, end: 20100101
  2. SEROQUEL [Suspect]
     Route: 048
     Dates: start: 20100101
  3. SEROQUEL [Suspect]
     Route: 048
  4. SEROQUEL [Suspect]
     Route: 048
  5. SEROQUEL [Suspect]
     Route: 048
  6. SEROQUEL [Suspect]
     Route: 048
  7. VITAMIN D [Concomitant]
  8. ATIVAN [Concomitant]
  9. SEROQUEL [Suspect]
     Indication: BIPOLAR DISORDER
     Route: 048
     Dates: start: 20050101, end: 20100101
  10. MULTI-VITAMIN [Concomitant]
  11. ZOLOFT [Concomitant]
  12. SEROQUEL [Suspect]
     Route: 048
  13. VITAMIN B-12 [Concomitant]
  14. ASPIRIN [Concomitant]
  15. SEROQUEL [Suspect]
     Route: 048
  16. SEROQUEL [Suspect]
     Route: 048
  17. SEROQUEL [Suspect]
     Route: 048
  18. POTASSIUM [Concomitant]
  19. KEPPRA [Concomitant]
  20. SEROQUEL [Suspect]
     Route: 048
  21. SEROQUEL [Suspect]
     Route: 048
  22. VITAMIN B1 TAB [Concomitant]
  23. SEROQUEL [Suspect]
     Route: 048
     Dates: start: 20100101
  24. SEROQUEL [Suspect]
     Route: 048
  25. SEROQUEL [Suspect]
     Route: 048

REACTIONS (4)
  - ALCOHOL ABUSE [None]
  - DRUG INEFFECTIVE [None]
  - FEELING ABNORMAL [None]
  - DRUG EFFECT DECREASED [None]
